FAERS Safety Report 12632665 (Version 2)
Quarter: 2016Q3

REPORT INFORMATION
  Report Type: Spontaneous
  Country: US (occurrence: US)
  Receive Date: 20160808
  Receipt Date: 20160808
  Transmission Date: 20161109
  Serious: No
  Sender: FDA-Public Use
  Company Number: US-BEH-2015056448

PATIENT
  Sex: Female
  Weight: 78 kg

DRUGS (22)
  1. RESTASIS [Concomitant]
     Active Substance: CYCLOSPORINE
  2. ASPIRIN. [Concomitant]
     Active Substance: ASPIRIN
  3. FOLIC ACID. [Concomitant]
     Active Substance: FOLIC ACID
  4. LISINOPRIL. [Concomitant]
     Active Substance: LISINOPRIL
  5. ELLURA [Concomitant]
     Active Substance: DIETARY SUPPLEMENT
  6. ZETIA [Concomitant]
     Active Substance: EZETIMIBE
  7. VAGIFEM [Concomitant]
     Active Substance: ESTRADIOL
  8. VITAMIN B12 [Concomitant]
     Active Substance: CYANOCOBALAMIN
  9. PEPCID [Concomitant]
     Active Substance: FAMOTIDINE
  10. DIPHENHYDRAMINE. [Concomitant]
     Active Substance: DIPHENHYDRAMINE
  11. LOVAZA [Concomitant]
     Active Substance: OMEGA-3-ACID ETHYL ESTERS
  12. LIDOCAINE. [Concomitant]
     Active Substance: LIDOCAINE
  13. CLARITHROMYCIN. [Concomitant]
     Active Substance: CLARITHROMYCIN
  14. VITAMIN C [Concomitant]
     Active Substance: ASCORBIC ACID
  15. HIZENTRA [Suspect]
     Active Substance: HUMAN IMMUNOGLOBULIN G
     Indication: IMMUNODEFICIENCY COMMON VARIABLE
     Route: 058
  16. SINGULAIR [Concomitant]
     Active Substance: MONTELUKAST SODIUM
  17. ACETAMINOPHEN. [Concomitant]
     Active Substance: ACETAMINOPHEN
  18. EPIPEN [Concomitant]
     Active Substance: EPINEPHRINE
  19. VERAPAMIL [Concomitant]
     Active Substance: VERAPAMIL HYDROCHLORIDE
  20. OYSTER SHELL CALCIUM-VITAMIN D [Concomitant]
  21. VITAMIN D3 [Concomitant]
     Active Substance: CHOLECALCIFEROL
  22. MULTIVITAMINS [Concomitant]
     Active Substance: VITAMINS

REACTIONS (6)
  - Influenza like illness [Unknown]
  - Erythema [Unknown]
  - Fatigue [Unknown]
  - Oropharyngeal pain [Unknown]
  - Pruritus [Unknown]
  - Upper respiratory tract infection [Unknown]
